FAERS Safety Report 8451276-5 (Version None)
Quarter: 2012Q2

REPORT INFORMATION
  Report Type: 
  Country: None (occurrence: None)
  Receive Date: 20120620
  Receipt Date: 20120301
  Transmission Date: 20120825
  Serious: No
  Sender: FDA-Public Use
  Company Number: US-VERTEX PHARMACEUTICALS INC.-AE-2012-002236

PATIENT
  Sex: Female

DRUGS (7)
  1. BUPROPION HCL [Concomitant]
  2. RIBAVIRIN [Concomitant]
     Indication: HEPATITIS C
     Route: 048
     Dates: start: 20120208
  3. ABILIFY [Concomitant]
  4. PEGASYS [Concomitant]
     Indication: HEPATITIS C
     Route: 058
     Dates: start: 20120210
  5. PRILOSEC [Concomitant]
  6. INCIVEK [Suspect]
     Indication: HEPATITIS C
     Route: 048
     Dates: start: 20120208
  7. METAMUCIL-2 [Concomitant]

REACTIONS (4)
  - OEDEMA PERIPHERAL [None]
  - FLATULENCE [None]
  - DRY SKIN [None]
  - RASH MACULAR [None]
